FAERS Safety Report 6123852-6 (Version None)
Quarter: 2009Q1

REPORT INFORMATION
  Report Type: 
  Country: None (occurrence: None)
  Receive Date: 20090318
  Receipt Date: 20090318
  Transmission Date: 20090719
  Serious: Yes (Death)
  Sender: FDA-Public Use
  Company Number: None

PATIENT
  Sex: Female

DRUGS (2)
  1. FLUDARABINE PHOSPHATE [Suspect]
     Indication: STEM CELL TRANSPLANT
     Dosage: 57 MG DAILY IV DRIP
     Route: 041
     Dates: start: 20081224, end: 20081228
  2. MELPHALAN [Suspect]
     Dosage: 133 MG DAILY IV DRIP
     Route: 041
     Dates: start: 20081229, end: 20081229

REACTIONS (6)
  - DIALYSIS [None]
  - DYSPNOEA [None]
  - EPSTEIN-BARR VIRUS ASSOCIATED LYMPHOPROLIFERATIVE DISORDER [None]
  - GENERAL PHYSICAL HEALTH DETERIORATION [None]
  - NO THERAPEUTIC RESPONSE [None]
  - RESPIRATORY DISORDER [None]
